FAERS Safety Report 20147460 (Version 1)
Quarter: 2021Q4

REPORT INFORMATION
  Report Type: Spontaneous
  Country: US (occurrence: US)
  Receive Date: 20211203
  Receipt Date: 20211203
  Transmission Date: 20220304
  Serious: Yes (Other)
  Sender: FDA-Public Use
  Company Number: US-SA-SAC20211126001696

PATIENT
  Sex: Female

DRUGS (18)
  1. AUBAGIO [Suspect]
     Active Substance: TERIFLUNOMIDE
     Indication: Multiple sclerosis
     Dosage: 1 DF, QD
     Route: 048
  2. AMANTADINE [Concomitant]
     Active Substance: AMANTADINE
     Dosage: 7MG
  3. ALPRAZOLAM [Concomitant]
     Active Substance: ALPRAZOLAM
  4. RISPERIDONE [Concomitant]
     Active Substance: RISPERIDONE
  5. VITAMIN D2 [Concomitant]
     Active Substance: ERGOCALCIFEROL
  6. VITAMIN B12 [Concomitant]
     Active Substance: CYANOCOBALAMIN
     Indication: Multiple sclerosis
  7. VITAMINS C [Concomitant]
  8. FLUTICASONE PROPIONATE [Concomitant]
     Active Substance: FLUTICASONE PROPIONATE
  9. AZELASTINE [Concomitant]
     Active Substance: AZELASTINE
  10. MONTELUKAST SODIUM [Concomitant]
     Active Substance: MONTELUKAST SODIUM
  11. PROLIA [Concomitant]
     Active Substance: DENOSUMAB
  12. TESTOSTERONE [Concomitant]
     Active Substance: TESTOSTERONE
  13. ESTRADIOL [Concomitant]
     Active Substance: ESTRADIOL
  14. PROGESTERONE [Concomitant]
     Active Substance: PROGESTERONE
  15. BUPROPION [Concomitant]
     Active Substance: BUPROPION
  16. OMEPRAZOLE [Concomitant]
     Active Substance: OMEPRAZOLE
  17. LEVOTHYROXINE [Concomitant]
     Active Substance: LEVOTHYROXINE
  18. CUVITRU [Concomitant]
     Active Substance: HUMAN IMMUNOGLOBULIN G

REACTIONS (1)
  - Kidney infection [Unknown]
